FAERS Safety Report 10236696 (Version 1)
Quarter: 2014Q2

REPORT INFORMATION
  Report Type: Spontaneous
  Country: CA (occurrence: CA)
  Receive Date: 20140613
  Receipt Date: 20140613
  Transmission Date: 20141212
  Serious: Yes (Death)
  Sender: FDA-Public Use
  Company Number: CA-GLAXOSMITHKLINE-A1038492A

PATIENT
  Age: 41 Year
  Sex: Female

DRUGS (2)
  1. TYKERB [Suspect]
     Indication: BREAST CANCER
     Dosage: 1250MG UNKNOWN
     Route: 065
  2. XELODA [Suspect]
     Indication: BREAST CANCER
     Route: 065

REACTIONS (3)
  - Somnolence [Unknown]
  - Faeces soft [Unknown]
  - Death [Fatal]
